FAERS Safety Report 9260970 (Version 2)
Quarter: 2014Q1

REPORT INFORMATION
  Report Type: Spontaneous
  Country: US (occurrence: None)
  Receive Date: 20121212
  Receipt Date: 20130314
  Transmission Date: 20141002
  Serious: No
  Sender: FDA-Public Use
  Company Number: 1209USA002614

PATIENT
  Age: 60 Year
  Sex: Male

DRUGS (7)
  1. VICTRELIS [Suspect]
     Indication: HEPATITIS C
     Route: 048
     Dates: start: 20120809
  2. INTERFERON (UNSPECIFIED) [Suspect]
  3. PEGASYS [Suspect]
  4. RIBAVIRIN (RIBAVIRIN) CAPSULE, 200MG [Suspect]
  5. LITHIUM CARBONATE [Concomitant]
  6. NIASPAN (NIACIN) [Concomitant]
  7. ATENOLOL [Concomitant]

REACTIONS (4)
  - Motion sickness [None]
  - Nausea [None]
  - Nausea [None]
  - Anaemia [None]
